FAERS Safety Report 4895794-5 (Version None)
Quarter: 2006Q1

REPORT INFORMATION
  Report Type: 
  Country: None (occurrence: None)
  Receive Date: 20060125
  Receipt Date: 20060116
  Transmission Date: 20060701
  Serious: Yes (Other)
  Sender: FDA-Public Use
  Company Number: 13260

PATIENT
  Age: 66 Year
  Sex: Female
  Weight: 64 kg

DRUGS (10)
  1. CARBOPLATIN [Suspect]
     Indication: OVARIAN CANCER
     Dosage: 510 MG ONCE, IV
     Route: 042
     Dates: start: 20051024
  2. CARBOPLATIN [Suspect]
     Indication: OVARIAN CANCER
     Dosage: 540 M ONCE, IV
     Route: 042
  3. CARBOPLATIN [Suspect]
     Indication: OVARIAN CANCER
     Dosage: 470 MG ONCE, IV
     Route: 042
  4. RAMIPRIL [Concomitant]
  5. SIMVASTATIN [Concomitant]
  6. THYROXINE [Concomitant]
  7. OMEPRAZOLE [Concomitant]
  8. FRUSEMIDE [Concomitant]
  9. WARFARIN SODIUM [Concomitant]
  10. TEGRETOL [Concomitant]

REACTIONS (4)
  - ABDOMINAL DISCOMFORT [None]
  - BLOOD CALCIUM DECREASED [None]
  - BLOOD MAGNESIUM DECREASED [None]
  - TETANY [None]
